FAERS Safety Report 8295890-9 (Version None)
Quarter: 2012Q2

REPORT INFORMATION
  Report Type: 
  Country: None (occurrence: None)
  Receive Date: 20120418
  Receipt Date: 20120410
  Transmission Date: 20120825
  Serious: Yes (Hospitalization)
  Sender: FDA-Public Use
  Company Number: US-ROCHE-1058491

PATIENT
  Age: 53 Year
  Sex: Female
  Weight: 74.456 kg

DRUGS (3)
  1. RITUXIMAB [Suspect]
     Indication: PRODUCT USED FOR UNKNOWN INDICATION
     Route: 042
     Dates: start: 20100119, end: 20120112
  2. CYTOXAN [Suspect]
     Indication: PRODUCT USED FOR UNKNOWN INDICATION
     Route: 042
     Dates: start: 20110516, end: 20120116
  3. FLUDARABINE PHOSPHATE [Suspect]
     Indication: PRODUCT USED FOR UNKNOWN INDICATION
     Route: 042
     Dates: start: 20111214, end: 20120116

REACTIONS (6)
  - HYPOTENSION [None]
  - DIZZINESS [None]
  - DRUG HYPERSENSITIVITY [None]
  - RASH [None]
  - FEBRILE NEUTROPENIA [None]
  - CHRONIC LYMPHOCYTIC LEUKAEMIA RECURRENT [None]
